FAERS Safety Report 7721443-4 (Version None)
Quarter: 2011Q3

REPORT INFORMATION
  Report Type: 
  Country: None (occurrence: None)
  Receive Date: 20110831
  Receipt Date: 20110817
  Transmission Date: 20111222
  Serious: Yes (Other)
  Sender: FDA-Public Use
  Company Number: DE-ROCHE-799409

PATIENT
  Sex: Male
  Weight: 85 kg

DRUGS (9)
  1. ESCITALOPRAM [Concomitant]
     Indication: DEPRESSION
     Route: 048
  2. ATACAND [Concomitant]
     Indication: HYPERTENSION
     Route: 048
  3. MARCUMAR [Suspect]
     Route: 048
     Dates: start: 20110818
  4. PANTOPRAZOLE [Concomitant]
     Indication: PROPHYLAXIS
     Route: 048
  5. TAMSULOSIN HCL [Concomitant]
     Route: 048
  6. SIMAVASTATIN [Concomitant]
     Route: 048
  7. CELLCEPT [Suspect]
     Route: 048
     Dates: start: 20030501
  8. MARCUMAR [Suspect]
     Indication: PULMONARY EMBOLISM
     Route: 048
     Dates: start: 20010901, end: 20110801
  9. METOPROLOL SUCCINATE [Concomitant]
     Indication: HYPERTENSION
     Route: 048

REACTIONS (2)
  - INTERNATIONAL NORMALISED RATIO INCREASED [None]
  - LEUKOPENIA [None]
